FAERS Safety Report 6969286-3 (Version None)
Quarter: 2010Q3

REPORT INFORMATION
  Report Type: 
  Country: None (occurrence: None)
  Receive Date: 20100907
  Receipt Date: 20100827
  Transmission Date: 20110219
  Serious: Yes (Other)
  Sender: FDA-Public Use
  Company Number: US-BAYER-201019585BCC

PATIENT
  Age: 35 Year
  Sex: Female
  Weight: 79 kg

DRUGS (2)
  1. ALEVE [Suspect]
     Indication: PAIN
     Dosage: 8 TO 12 TABLETS DAILY
     Route: 048
     Dates: start: 20100821
  2. DIOVAN [Concomitant]
     Route: 065

REACTIONS (3)
  - ABDOMINAL PAIN UPPER [None]
  - HAEMATOCHEZIA [None]
  - NAUSEA [None]
